FAERS Safety Report 7204036-7 (Version None)
Quarter: 2010Q4

REPORT INFORMATION
  Report Type: 
  Country: None (occurrence: None)
  Receive Date: 20101220
  Receipt Date: 20101210
  Transmission Date: 20110411
  Serious: Yes (Hospitalization)
  Sender: FDA-Public Use
  Company Number: TPA2010A06246

PATIENT
  Age: 83 Year
  Sex: Female

DRUGS (6)
  1. ADENURIC (FEBUXOSTAT) [Suspect]
     Indication: HYPERURICAEMIA
     Dosage: 80 MG (80 MG, 1 IN 1 D)
     Route: 048
     Dates: start: 20101104, end: 20101122
  2. LEVOFLOXACIN [Suspect]
     Indication: BLOOD CULTURE POSITIVE
     Dosage: 1000 MG (1000 MG, 1 IN 1 D)
     Route: 042
     Dates: start: 20101117, end: 20101122
  3. FENTANYL CITRATE [Concomitant]
  4. CITALOPRAM [Concomitant]
  5. METOCLOPRAMIDE [Concomitant]
  6. NUTRIFLEX (ALL OTHER THERAPEUTIC PRODUCTS) [Concomitant]

REACTIONS (3)
  - BLOOD CULTURE POSITIVE [None]
  - HEPATIC FAILURE [None]
  - LEUKOCYTOCLASTIC VASCULITIS [None]
